FAERS Safety Report 5735104-4 (Version None)
Quarter: 2008Q2

REPORT INFORMATION
  Report Type: 
  Country: None (occurrence: None)
  Receive Date: 20080512
  Receipt Date: 20080506
  Transmission Date: 20081010
  Serious: Yes (Hospitalization)
  Sender: FDA-Public Use
  Company Number: US-WYE-H03948508

PATIENT
  Sex: Female
  Weight: 118.04 kg

DRUGS (6)
  1. TYGACIL [Suspect]
     Indication: ACINETOBACTER INFECTION
     Route: 042
     Dates: start: 20070905, end: 20071114
  2. OXYCONTIN [Concomitant]
     Indication: PAIN
     Dosage: UNKNOWN
  3. IBUPROFEN TABLETS [Concomitant]
     Indication: PAIN
     Dosage: UNKNOWN DOSE AS NEEDED
  4. NORCO [Concomitant]
     Indication: PAIN
     Dosage: UNKNOWN
  5. EFFEXOR XR [Concomitant]
     Indication: DEPRESSION
  6. ATENOLOL [Concomitant]
     Indication: HYPERTENSION
     Dosage: 50 MG UNKNOWN FREQUENCY

REACTIONS (8)
  - CHILLS [None]
  - EXERCISE LACK OF [None]
  - FATIGUE [None]
  - GASTROINTESTINAL DISORDER [None]
  - MYALGIA [None]
  - NAUSEA [None]
  - PULMONARY EMBOLISM [None]
  - TACHYCARDIA [None]
